FAERS Safety Report 7778791-1 (Version None)
Quarter: 2011Q3

REPORT INFORMATION
  Report Type: 
  Country: None (occurrence: None)
  Receive Date: 20110926
  Receipt Date: 20110920
  Transmission Date: 20111222
  Serious: Yes (Other)
  Sender: FDA-Public Use
  Company Number: US-BAYER-2011-089400

PATIENT
  Sex: Male

DRUGS (1)
  1. CIPROFLOXACIN [Suspect]

REACTIONS (1)
  - TENDON RUPTURE [None]
